FAERS Safety Report 8489649-7 (Version None)
Quarter: 2012Q3

REPORT INFORMATION
  Report Type: 
  Country: None (occurrence: None)
  Receive Date: 20120705
  Receipt Date: 20120626
  Transmission Date: 20120928
  Serious: Yes (Other)
  Sender: FDA-Public Use
  Company Number: US-JNJFOC-20120517521

PATIENT
  Sex: Male
  Weight: 131.54 kg

DRUGS (11)
  1. LISINOPRIL [Concomitant]
     Indication: HYPERTENSION
  2. CARVEDILOL [Concomitant]
     Indication: ISCHAEMIC CARDIOMYOPATHY
  3. CRESTOR [Concomitant]
     Indication: BLOOD CHOLESTEROL
  4. ISOSORBIDE MONONITRATE [Concomitant]
     Indication: HYPERTENSION
  5. HYDROCHLOROTHIAZIDE [Concomitant]
  6. HYDROCHLOROTHIAZIDE [Concomitant]
     Indication: HYPERTENSION
  7. ASPIRIN [Concomitant]
     Indication: CORONARY ARTERY DISEASE
  8. CARVEDILOL [Concomitant]
     Indication: HYPERTENSION
  9. CLONIDINE [Concomitant]
     Indication: HYPERTENSION
  10. XARELTO [Suspect]
     Indication: ATRIAL FIBRILLATION
     Route: 048
     Dates: start: 20120417, end: 20120521
  11. AMLODIPINE [Concomitant]
     Indication: HYPERTENSION

REACTIONS (3)
  - URINARY TRACT INFECTION [None]
  - BACK PAIN [None]
  - CHROMATURIA [None]
